FAERS Safety Report 10027037 (Version 3)
Quarter: 2014Q1

REPORT INFORMATION
  Report Type: Spontaneous
  Country: FR (occurrence: None)
  Receive Date: 20140318
  Receipt Date: 20140331
  Transmission Date: 20141002
  Serious: Yes (Hospitalization)
  Sender: FDA-Public Use
  Company Number: AUR-APL-2014-02842

PATIENT
  Age: 64 Year
  Sex: Female

DRUGS (11)
  1. RAMIPRIL [Suspect]
     Indication: PRODUCT USED FOR UNKNOWN INDICATION
     Dosage: 2.5 MG (2.5 MG, 1 IN 1 D), ORAL
     Route: 048
     Dates: end: 201310
  2. INSPRA [Suspect]
     Indication: PRODUCT USED FOR UNKNOWN INDICATION
     Dosage: (1 DOSAGE FORMS, 1 D), ORAL
     Route: 048
     Dates: end: 201310
  3. LASILIX [Suspect]
     Indication: PRODUCT USED FOR UNKNOWN INDICATION
     Dosage: 500 MG (250 MG, 2 IN 1 D), ORAL
     Route: 048
     Dates: end: 201310
  4. ESIDREX [Suspect]
     Indication: PRODUCT USED FOR UNKNOWN INDICATION
     Dosage: (1 DOSAGE FORMS, 1 D), ORAL
     Route: 048
     Dates: end: 201310
  5. PROCORALAN [Concomitant]
  6. CARDENSIEL [Concomitant]
  7. BRILIQUE [Concomitant]
  8. KARDEGIC (ACETYLSALICYLATE LYSINE) [Concomitant]
  9. NEXIUM (ESOMEPRAZOLE MAGNESIUM) [Concomitant]
  10. VIREAD [Concomitant]
  11. ZEFFIX [Concomitant]

REACTIONS (12)
  - Hypotension [None]
  - Dehydration [None]
  - Renal failure [None]
  - Cardiac failure [None]
  - Dizziness [None]
  - General physical condition abnormal [None]
  - Decreased appetite [None]
  - Blood pressure systolic decreased [None]
  - Livedo reticularis [None]
  - Cardiac murmur [None]
  - Hypovolaemia [None]
  - Prerenal failure [None]
